FAERS Safety Report 5010065-4 (Version None)
Quarter: 2006Q2

REPORT INFORMATION
  Report Type: 
  Country: None (occurrence: None)
  Receive Date: 20060523
  Receipt Date: 20060510
  Transmission Date: 20061013
  Serious: Yes (Life-Threatening)
  Sender: FDA-Public Use
  Company Number: 2006060860

PATIENT
  Age: 67 Year
  Sex: Female
  Weight: 50 kg

DRUGS (6)
  1. DETRUSITOL XL (TOLTERODINE) [Suspect]
     Indication: URINARY INCONTINENCE
     Dosage: 4 MG, ORAL
     Route: 048
     Dates: start: 20060406, end: 20060413
  2. FOSAMAX [Concomitant]
  3. OMEPRAZOLE [Concomitant]
  4. IBUPROFEN [Concomitant]
  5. ACETAMINOPHEN [Concomitant]
  6. CALCICHEW (CALCIUM CARBONATE) [Concomitant]

REACTIONS (1)
  - BLOOD POTASSIUM INCREASED [None]
